FAERS Safety Report 23618161 (Version 1)
Quarter: 2024Q1

REPORT INFORMATION
  Report Type: Spontaneous
  Country: PT (occurrence: PT)
  Receive Date: 20240311
  Receipt Date: 20240311
  Transmission Date: 20240410
  Serious: Yes (Death, Other)
  Sender: FDA-Public Use
  Company Number: PT-GILEAD-2024-0665177

PATIENT
  Age: 32 Year
  Sex: Female

DRUGS (2)
  1. TRODELVY [Suspect]
     Active Substance: SACITUZUMAB GOVITECAN-HZIY
     Indication: Product used for unknown indication
     Dosage: C1D1
     Route: 065
     Dates: start: 20230317
  2. TRODELVY [Suspect]
     Active Substance: SACITUZUMAB GOVITECAN-HZIY
     Dosage: C5D1
     Route: 065
     Dates: end: 20230607

REACTIONS (13)
  - Death [Fatal]
  - Myalgia [Unknown]
  - Nausea [Unknown]
  - Nausea [Unknown]
  - Fatigue [Unknown]
  - Nausea [Unknown]
  - Fatigue [Unknown]
  - Hypomagnesaemia [Unknown]
  - Hepatic enzyme increased [Unknown]
  - Product dose omission issue [Unknown]
  - Nausea [Unknown]
  - Fatigue [Unknown]
  - Back pain [Unknown]

NARRATIVE: CASE EVENT DATE: 20230412
